FAERS Safety Report 10751947 (Version 2)
Quarter: 2016Q1

REPORT INFORMATION
  Report Type: Spontaneous
  Country: US (occurrence: US)
  Receive Date: 20150130
  Receipt Date: 20160211
  Transmission Date: 20160525
  Serious: No
  Sender: FDA-Public Use
  Company Number: US-ENDO PHARMACEUTICALS INC.-FORT20140212

PATIENT
  Age: 64 Year
  Sex: Male

DRUGS (2)
  1. FORTESTA [Suspect]
     Active Substance: TESTOSTERONE
     Indication: ANDROGEN DEFICIENCY
     Route: 061
     Dates: start: 2013
  2. FORTESTA [Suspect]
     Active Substance: TESTOSTERONE
     Route: 061

REACTIONS (6)
  - Wrong technique in product usage process [Recovered/Resolved]
  - Application site erosion [Recovering/Resolving]
  - Application site erythema [Recovering/Resolving]
  - Overdose [Not Recovered/Not Resolved]
  - Application site pain [Recovering/Resolving]
  - Drug effect decreased [Not Recovered/Not Resolved]

NARRATIVE: CASE EVENT DATE: 2013
